FAERS Safety Report 15190027 (Version 3)
Quarter: 2018Q3

REPORT INFORMATION
  Report Type: Spontaneous
  Country: JP (occurrence: JP)
  Receive Date: 20180724
  Receipt Date: 20180828
  Transmission Date: 20181010
  Serious: Yes (Other)
  Sender: FDA-Public Use
  Company Number: JP-CELGENEUS-JPN-20180401202

PATIENT
  Age: 66 Year
  Sex: Male

DRUGS (1)
  1. VIDAZA [Suspect]
     Active Substance: AZACITIDINE
     Indication: CHRONIC MYELOMONOCYTIC LEUKAEMIA
     Dosage: 100 MG
     Route: 058

REACTIONS (9)
  - Platelet count decreased [Unknown]
  - Anaemia [Unknown]
  - Skin exfoliation [Unknown]
  - Pruritus [Unknown]
  - Constipation [Unknown]
  - Fatigue [Unknown]
  - Pancytopenia [Unknown]
  - Dry skin [Unknown]
  - Weight decreased [Unknown]
